FAERS Safety Report 25752581 (Version 1)
Quarter: 2025Q3

REPORT INFORMATION
  Report Type: Spontaneous
  Country: US (occurrence: None)
  Receive Date: 20250826
  Receipt Date: 20250826
  Transmission Date: 20251020
  Serious: Yes (Other)
  Sender: FDA-CTU
  Company Number: None

PATIENT
  Age: 59 Year
  Sex: Female
  Weight: 81.65 kg

DRUGS (11)
  1. LEVOTHYROXINE SODIUM [Suspect]
     Active Substance: LEVOTHYROXINE SODIUM
     Indication: Thyroid disorder
     Dosage: 90 PILLS 1 ON AM EMPTY STOMCH IN THE MORNING BY MOUTH ???DATE OF TAKINGJUNE??DATE OF STOP AND REDUCED : UGUST
     Route: 048
  2. DEVICE [Concomitant]
     Active Substance: DEVICE
  3. ALBUTEROL [Concomitant]
     Active Substance: ALBUTEROL
  4. SYNTHROID [Concomitant]
     Active Substance: LEVOTHYROXINE SODIUM
  5. OMEPRAZOLE [Concomitant]
     Active Substance: OMEPRAZOLE
  6. BENZOTROPIN [Concomitant]
  7. LAMOTRIGINE [Concomitant]
     Active Substance: LAMOTRIGINE
  8. INVEGA TRINZA [Concomitant]
     Active Substance: PALIPERIDONE PALMITATE
  9. AMBIEN [Concomitant]
     Active Substance: ZOLPIDEM TARTRATE
  10. LISINOPRIL [Concomitant]
     Active Substance: LISINOPRIL
  11. VITAMIN D [Concomitant]
     Active Substance: VITAMIN D NOS

REACTIONS (2)
  - Choking sensation [None]
  - Hypersensitivity [None]

NARRATIVE: CASE EVENT DATE: 20250701
